FAERS Safety Report 21248886 (Version 1)
Quarter: 2022Q3

REPORT INFORMATION
  Report Type: Spontaneous
  Country: US (occurrence: US)
  Receive Date: 20220824
  Receipt Date: 20220824
  Transmission Date: 20221027
  Serious: No
  Sender: FDA-Public Use
  Company Number: US-ANIPHARMA-2022-US-001750

PATIENT
  Sex: 0

DRUGS (2)
  1. ANASTROZOLE [Suspect]
     Active Substance: ANASTROZOLE
     Indication: Product used for unknown indication
     Route: 065
  2. IBRANCE [Suspect]
     Active Substance: PALBOCICLIB
     Dosage: TAKE 1 TABLET (125MG) BY MOUTH DAILY ON DAYS 1 THROUGH 21 EVERY 28 DAYS WITH FOOD
     Route: 065
     Dates: start: 20220107

REACTIONS (1)
  - Hot flush [Unknown]
